FAERS Safety Report 8227506-1 (Version None)
Quarter: 2012Q1

REPORT INFORMATION
  Report Type: 
  Country: None (occurrence: None)
  Receive Date: 20120322
  Receipt Date: 20120314
  Transmission Date: 20120608
  Serious: Yes (Hospitalization)
  Sender: FDA-Public Use
  Company Number: US-AMGEN-USASP2012016681

PATIENT
  Age: 53 Year
  Sex: Female

DRUGS (1)
  1. ENBREL [Suspect]
     Indication: RHEUMATOID ARTHRITIS
     Dosage: 50 MG, QWK
     Dates: start: 20100301

REACTIONS (5)
  - MUSCULAR WEAKNESS [None]
  - OSTEOARTHRITIS [None]
  - ARTHRALGIA [None]
  - PAIN IN EXTREMITY [None]
  - TENDON GRAFT [None]
